FAERS Safety Report 13720763 (Version 1)
Quarter: 2017Q3

REPORT INFORMATION
  Report Type: Spontaneous
  Country: US (occurrence: US)
  Receive Date: 20170706
  Receipt Date: 20170706
  Transmission Date: 20171127
  Serious: Yes (Other)
  Sender: FDA-Public Use
  Company Number: US-STRIDES ARCOLAB LIMITED-2017SP010355

PATIENT

DRUGS (5)
  1. VANCOMYCIN [Interacting]
     Active Substance: VANCOMYCIN
     Dosage: UNK
  2. VANCOMYCIN [Suspect]
     Active Substance: VANCOMYCIN
     Indication: ANTIBIOTIC PROPHYLAXIS
     Dosage: 1 MG, UNKNOWN
     Route: 031
  3. VANCOMYCIN [Interacting]
     Active Substance: VANCOMYCIN
     Indication: ENDOPHTHALMITIS
     Dosage: 1 MG, UNKNOWN
     Route: 031
  4. VISCOELASTIC SUBSTANCES [Interacting]
     Active Substance: DEVICE
     Indication: CATARACT OPERATION
     Dosage: UNK
     Route: 031
  5. GENTAMICIN. [Concomitant]
     Active Substance: GENTAMICIN
     Indication: PRODUCT USED FOR UNKNOWN INDICATION
     Dosage: UNK
     Route: 065

REACTIONS (6)
  - Drug interaction [Unknown]
  - Retinal vasculitis [Unknown]
  - Retinal vascular occlusion [Unknown]
  - Haemorrhagic vasculitis [Unknown]
  - Glaucoma [Unknown]
  - Type III immune complex mediated reaction [Unknown]
